FAERS Safety Report 15459877 (Version 2)
Quarter: 2018Q4

REPORT INFORMATION
  Report Type: Report from Study
  Country: None (occurrence: CH)
  Receive Date: 20181003
  Receipt Date: 20181016
  Transmission Date: 20190204
  Serious: No
  Sender: FDA-Public Use
  Company Number: CH-ABBVIE-17K-151-2186467-00

PATIENT
  Sex: Female
  Weight: 43.7 kg

DRUGS (11)
  1. DUODOPA [Suspect]
     Active Substance: CARBIDOPA\LEVODOPA
     Dosage: MD: 7.5ML CD: 6.8ML/H ED: 3ML 16H THERAPY
     Route: 050
     Dates: start: 20180201
  2. DUODOPA [Suspect]
     Active Substance: CARBIDOPA\LEVODOPA
     Route: 050
  3. DUODOPA [Suspect]
     Active Substance: CARBIDOPA\LEVODOPA
     Indication: PARKINSON^S DISEASE
     Dosage: MD: 7.5ML CD: 6.3ML/H ED: 2.5ML
     Route: 050
     Dates: start: 20160105, end: 20160621
  4. DUODOPA [Suspect]
     Active Substance: CARBIDOPA\LEVODOPA
     Dosage: MD: 7.5ML CD: 6.2ML/H ED: 2.5ML
     Route: 050
     Dates: start: 20160621, end: 201707
  5. DUODOPA [Suspect]
     Active Substance: CARBIDOPA\LEVODOPA
     Dosage: MD: 7.5ML CD: 6.1ML/H ED: 2.5ML
     Route: 050
     Dates: start: 201607
  6. DUODOPA [Suspect]
     Active Substance: CARBIDOPA\LEVODOPA
     Dosage: MD: 7.5ML CD: 6.6ML/H ED: 2.5ML
     Route: 050
     Dates: end: 20180201
  7. LISINOPRIL. [Concomitant]
     Active Substance: LISINOPRIL
     Indication: PRODUCT USED FOR UNKNOWN INDICATION
     Dosage: MORNING
     Route: 065
  8. ACIDUM FOLICUM [Concomitant]
     Active Substance: FOLIC ACID
     Indication: PRODUCT USED FOR UNKNOWN INDICATION
     Dosage: MONDAY, WEDNESDAY, FRIDAY
     Route: 065
  9. DUODOPA [Suspect]
     Active Substance: CARBIDOPA\LEVODOPA
     Dosage: MD: 7.5ML, CD: 6.9ML/H, ED: 3ML TIME BLOCKED 1H LL 0
     Route: 050
  10. SINEMET [Concomitant]
     Active Substance: CARBIDOPA\LEVODOPA
     Indication: PRODUCT USED FOR UNKNOWN INDICATION
     Dosage: NIGHT TIME
     Route: 065
  11. DUODOPA [Suspect]
     Active Substance: CARBIDOPA\LEVODOPA
     Dosage: MD: 7.5ML CD: 6.8ML/H ED: 2.5ML 16H THERAPY
     Route: 050
     Dates: start: 20180201, end: 20180201

REACTIONS (7)
  - Dyskinesia [Unknown]
  - Stoma site hypergranulation [Recovered/Resolved]
  - Akinesia [Recovering/Resolving]
  - Hyperkinesia [Recovering/Resolving]
  - Device dislocation [Recovered/Resolved]
  - Dysphagia [Not Recovered/Not Resolved]
  - On and off phenomenon [Recovering/Resolving]
